FAERS Safety Report 22380712 (Version 1)
Quarter: 2023Q2

REPORT INFORMATION
  Report Type: Spontaneous
  Country: US (occurrence: US)
  Receive Date: 20230529
  Receipt Date: 20230529
  Transmission Date: 20230721
  Serious: No
  Sender: FDA-Public Use
  Company Number: US-BRISTOL-MYERS SQUIBB COMPANY-2023-075059

PATIENT
  Age: 69 Year
  Sex: Female

DRUGS (1)
  1. REVLIMID [Suspect]
     Active Substance: LENALIDOMIDE
     Indication: Product used for unknown indication
     Dosage: FREQUENCY CHANGED FROM 21 DAYS ON AND 7DAYS OFF TO 14 DAYS ON AND 14 DAYS OFF
     Route: 048

REACTIONS (2)
  - Ageusia [Recovering/Resolving]
  - Off label use [Unknown]
